FAERS Safety Report 6338841-6 (Version None)
Quarter: 2009Q3

REPORT INFORMATION
  Report Type: 
  Country: None (occurrence: None)
  Receive Date: 20090827
  Receipt Date: 20090713
  Transmission Date: 20100115
  Serious: Yes (Life-Threatening)
  Sender: FDA-Public Use
  Company Number: 001251

PATIENT
  Sex: Female
  Weight: 81.8 kg

DRUGS (10)
  1. LACOSAMIDE [Suspect]
     Indication: CONVULSION
     Dosage: 100 MG ORAL,  200 MG ORAL
     Route: 048
     Dates: start: 20090630, end: 20090707
  2. LACOSAMIDE [Suspect]
     Indication: CONVULSION
     Dosage: 100 MG ORAL,  200 MG ORAL
     Route: 048
     Dates: start: 20090707
  3. LEXAPRO [Concomitant]
  4. XANAX XR [Concomitant]
  5. TRAZODONE [Concomitant]
  6. HALCION [Concomitant]
  7. LAMICTAL [Concomitant]
  8. NEURONTIN [Concomitant]
  9. RANITIDINE [Concomitant]
  10. ELMIRON [Concomitant]

REACTIONS (3)
  - AGITATION [None]
  - DEPRESSION [None]
  - SUICIDAL IDEATION [None]
